FAERS Safety Report 23771580 (Version 3)
Quarter: 2025Q1

REPORT INFORMATION
  Report Type: Report from Study
  Country: US (occurrence: US)
  Receive Date: 20240423
  Receipt Date: 20250307
  Transmission Date: 20250409
  Serious: No
  Sender: ACADIA PHARMACEUTICALS
  Company Number: US-ACADIA PHARMACEUTICALS INC.-ACA-2024-PIM-001616

PATIENT
  Age: 89 Year
  Sex: Male

DRUGS (1)
  1. NUPLAZID [Suspect]
     Active Substance: PIMAVANSERIN TARTRATE
     Indication: Parkinson^s disease psychosis
     Dosage: 34 MILLIGRAM, QD
     Route: 048

REACTIONS (3)
  - Disease progression [Recovered/Resolved]
  - Confusional state [Recovered/Resolved]
  - Living in residential institution [Recovered/Resolved]

NARRATIVE: CASE EVENT DATE: 20240601
